FAERS Safety Report 6996939-3 (Version None)
Quarter: 2010Q3

REPORT INFORMATION
  Report Type: 
  Country: None (occurrence: None)
  Receive Date: 20100918
  Receipt Date: 20090818
  Transmission Date: 20110219
  Serious: No
  Sender: FDA-Public Use
  Company Number: US-WYE-H10638909

PATIENT
  Sex: Female

DRUGS (5)
  1. EFFEXOR XR [Suspect]
     Indication: ANXIETY
     Route: 048
  2. EFFEXOR XR [Suspect]
     Route: 048
  3. EFFEXOR XR [Suspect]
     Dosage: DECREASED THE DOSE AND INCREASED THE DOSING INTERVAL
     Route: 048
  4. EFFEXOR XR [Suspect]
     Dosage: EVENTUALLY TAPERED OFF
     Route: 048
  5. VAGIFEM [Concomitant]

REACTIONS (3)
  - HEADACHE [None]
  - THERAPEUTIC RESPONSE UNEXPECTED [None]
  - WEIGHT DECREASED [None]
